FAERS Safety Report 8625498-4 (Version None)
Quarter: 2012Q3

REPORT INFORMATION
  Report Type: 
  Country: None (occurrence: None)
  Receive Date: 20120827
  Receipt Date: 20120813
  Transmission Date: 20120928
  Serious: Yes (Other)
  Sender: FDA-Public Use
  Company Number: ES-MYLANLABS-2012S1016749

PATIENT
  Age: 6 Year
  Sex: Female

DRUGS (2)
  1. LEVETIRACETAM [Suspect]
     Dosage: 53 MG/KG/DAY
     Route: 065
  2. LEVETIRACETAM [Suspect]
     Indication: CONVULSION
     Dosage: 15 MG/KG/DAY; PROGRESSIVELY INCREASED TO 53 MG/KG/DAY OVER 9MO
     Route: 065

REACTIONS (3)
  - VOMITING [None]
  - HEADACHE [None]
  - AUTISM [None]
